FAERS Safety Report 7265599-9 (Version None)
Quarter: 2011Q1

REPORT INFORMATION
  Report Type: 
  Country: None (occurrence: None)
  Receive Date: 20110131
  Receipt Date: 20110121
  Transmission Date: 20110831
  Serious: Yes (Other)
  Sender: FDA-Public Use
  Company Number: BR-BAYER-2011-006916

PATIENT
  Sex: Female
  Weight: 55 kg

DRUGS (1)
  1. MIRENA [Suspect]
     Indication: CONTRACEPTION
     Dosage: 20 MCG/24HR, CONT
     Route: 015
     Dates: start: 20101213

REACTIONS (10)
  - OVARIAN ENLARGEMENT [None]
  - BACK PAIN [None]
  - PAIN [None]
  - CHOKING SENSATION [None]
  - DEVICE DISLOCATION [None]
  - PHARYNGEAL DISORDER [None]
  - ABDOMINAL DISCOMFORT [None]
  - OVARIAN CYST [None]
  - COUGH [None]
  - DYSPNOEA [None]
